FAERS Safety Report 12089919 (Version 6)
Quarter: 2016Q3

REPORT INFORMATION
  Report Type: Report from Study
  Country: US (occurrence: US)
  Receive Date: 20160218
  Receipt Date: 20160809
  Transmission Date: 20161109
  Serious: Yes (Death, Hospitalization)
  Sender: FDA-Public Use
  Company Number: US-BAYER-2016-004810

PATIENT
  Age: 65 Year
  Sex: Male

DRUGS (10)
  1. SPIRONOLACTONE W/HYDROCHLOROTHIAZIDE [Concomitant]
     Active Substance: HYDROCHLOROTHIAZIDE\SPIRONOLACTONE
     Dosage: 25/25
  2. FOLIC ACID. [Concomitant]
     Active Substance: FOLIC ACID
  3. NEXAVAR [Suspect]
     Active Substance: SORAFENIB
     Indication: HEPATOCELLULAR CARCINOMA
     Dosage: 400 MG, BID (2 TABLETS TWICE A DAY UPON PHYSICIAN^S ORDER)
     Route: 048
     Dates: start: 20151219
  4. NEXAVAR [Suspect]
     Active Substance: SORAFENIB
     Indication: HEPATOCELLULAR CARCINOMA
     Dosage: 400 MG, BID (2 TABLETS TWICE A DAY UPON PHYSICIAN^S ORDER)
     Route: 048
     Dates: end: 2016
  5. LACTULOSE. [Concomitant]
     Active Substance: LACTULOSE
     Dosage: 10G/15
  6. PANTOPRAZOLE SODIUM. [Concomitant]
     Active Substance: PANTOPRAZOLE SODIUM
  7. SOFOSBUVIR [Concomitant]
     Active Substance: SOFOSBUVIR
  8. RIFAXIMIN [Concomitant]
     Active Substance: RIFAXIMIN
     Dosage: UNK
  9. SUCRALFAT [Concomitant]
     Active Substance: SUCRALFATE
     Dosage: 1G/10ML
  10. FUROSEMIDE. [Concomitant]
     Active Substance: FUROSEMIDE
     Dosage: 40MG/4ML

REACTIONS (16)
  - Glycosylated haemoglobin increased [None]
  - Dehydration [Not Recovered/Not Resolved]
  - Pruritus [Not Recovered/Not Resolved]
  - Abdominal distension [Not Recovered/Not Resolved]
  - Blood creatinine increased [None]
  - Death [Fatal]
  - Pneumonia [Not Recovered/Not Resolved]
  - Rash vesicular [Not Recovered/Not Resolved]
  - Abdominal pain upper [Not Recovered/Not Resolved]
  - Transfusion [Not Recovered/Not Resolved]
  - Dysphonia [Not Recovered/Not Resolved]
  - Dizziness [Not Recovered/Not Resolved]
  - Cardiac disorder [None]
  - Weight decreased [Not Recovered/Not Resolved]
  - Diplopia [Not Recovered/Not Resolved]
  - Pruritus generalised [Not Recovered/Not Resolved]

NARRATIVE: CASE EVENT DATE: 20151229
